FAERS Safety Report 15625043 (Version 3)
Quarter: 2019Q1

REPORT INFORMATION
  Report Type: Report from Study
  Country: BR (occurrence: BR)
  Receive Date: 20181116
  Receipt Date: 20190130
  Transmission Date: 20190417
  Serious: Yes (Other)
  Sender: FDA-Public Use
  Company Number: BR-AMGEN-BRACT2011058947

PATIENT
  Age: 47 Year
  Sex: Female
  Weight: 63 kg

DRUGS (4)
  1. ETANERCEPT [Suspect]
     Active Substance: ETANERCEPT
     Indication: ANKYLOSING SPONDYLITIS
     Dosage: 50 MG, QWK
     Route: 058
     Dates: start: 200906, end: 2011
  2. NORIPURUM [Concomitant]
     Active Substance: IRON POLYMALTOSE
     Indication: ANAEMIA
     Dosage: UNK
  3. ETANERCEPT [Suspect]
     Active Substance: ETANERCEPT
     Dosage: 50 MG, ONCE WEEKLY
     Route: 058
     Dates: start: 2011, end: 201805
  4. GESTINOL [Concomitant]
     Active Substance: ETHINYL ESTRADIOL\GESTODENE
     Indication: MENSTRUAL CYCLE MANAGEMENT
     Dosage: UNK

REACTIONS (6)
  - Gastrointestinal neoplasm [Unknown]
  - Decreased immune responsiveness [Unknown]
  - Calcinosis [Not Recovered/Not Resolved]
  - Wrong technique in product usage process [Recovered/Resolved]
  - Spinal disorder [Unknown]
  - Injection site pain [Not Recovered/Not Resolved]

NARRATIVE: CASE EVENT DATE: 201805
